FAERS Safety Report 19758356 (Version 2)
Quarter: 2021Q3

REPORT INFORMATION
  Report Type: Spontaneous
  Country: US (occurrence: US)
  Receive Date: 20210828
  Receipt Date: 20210920
  Transmission Date: 20211014
  Serious: Yes (Other)
  Sender: FDA-Public Use
  Company Number: US-TEVA-2021-US-1945147

PATIENT
  Age: 63 Year
  Sex: Female

DRUGS (6)
  1. CLONAZEPAM TEVA [Suspect]
     Active Substance: CLONAZEPAM
     Indication: ANXIETY
     Route: 065
     Dates: start: 20210815
  2. CLONAZEPAM(ACTAVIS) [Suspect]
     Active Substance: CLONAZEPAM
     Indication: PANIC DISORDER
  3. CLONAZEPAM(ACTAVIS) [Suspect]
     Active Substance: CLONAZEPAM
     Indication: DEPRESSION
  4. CLONAZEPAM TEVA [Suspect]
     Active Substance: CLONAZEPAM
     Indication: DEPRESSION
  5. CLONAZEPAM TEVA [Suspect]
     Active Substance: CLONAZEPAM
     Indication: PANIC DISORDER
  6. CLONAZEPAM(ACTAVIS) [Suspect]
     Active Substance: CLONAZEPAM
     Indication: ANXIETY
     Route: 065

REACTIONS (18)
  - Feeling abnormal [Not Recovered/Not Resolved]
  - Nausea [Recovered/Resolved]
  - Product use in unapproved indication [Unknown]
  - Nausea [Not Recovered/Not Resolved]
  - Somnolence [Recovered/Resolved]
  - Drug dependence [Unknown]
  - Dizziness [Recovered/Resolved]
  - Fatigue [Unknown]
  - Asthenia [Not Recovered/Not Resolved]
  - Dyspepsia [Recovered/Resolved]
  - Abdominal pain upper [Recovered/Resolved]
  - Insomnia [Unknown]
  - Somnolence [Not Recovered/Not Resolved]
  - Dizziness [Not Recovered/Not Resolved]
  - Asthenia [Recovered/Resolved]
  - Amnesia [Unknown]
  - Abdominal discomfort [Unknown]
  - Product dose omission issue [Unknown]

NARRATIVE: CASE EVENT DATE: 2021
